FAERS Safety Report 7164692-9 (Version None)
Quarter: 2010Q4

REPORT INFORMATION
  Report Type: 
  Country: None (occurrence: None)
  Receive Date: 20101215
  Receipt Date: 20101215
  Transmission Date: 20110411
  Serious: Yes (Other)
  Sender: FDA-Public Use
  Company Number: DO-ABBOTT-10P-CLI-0687751-00

PATIENT
  Sex: Female
  Weight: 56.75 kg

DRUGS (3)
  1. EPIVAL ER 500 MG [Suspect]
     Indication: BIPOLAR DISORDER
     Route: 048
     Dates: start: 20100701
  2. EPIVAL ER 500 MG [Suspect]
     Route: 048
  3. EPIVAL ER 500 MG [Suspect]
     Route: 048

REACTIONS (4)
  - BACK PAIN [None]
  - MALAISE [None]
  - MASTITIS [None]
  - URINARY TRACT INFLAMMATION [None]
